FAERS Safety Report 8563564-2 (Version None)
Quarter: 2012Q3

REPORT INFORMATION
  Report Type: 
  Country: None (occurrence: None)
  Receive Date: 20120803
  Receipt Date: 20120726
  Transmission Date: 20120928
  Serious: No
  Sender: FDA-Public Use
  Company Number: US-B.I. PHARMACEUTICALS,INC./RIDGEFIELD-2012-BP-16690BP

PATIENT
  Sex: Male

DRUGS (6)
  1. CYMBALTA [Concomitant]
     Indication: BACK PAIN
  2. SPIRIVA [Suspect]
     Indication: CHRONIC OBSTRUCTIVE PULMONARY DISEASE
     Dosage: 18 MCG
     Route: 055
     Dates: start: 20120703, end: 20120717
  3. MEDICATION NOT FURTHER SPECIFIED [Concomitant]
     Indication: BACK PAIN
     Route: 061
  4. SOTALOL HYDROCHLORIDE [Concomitant]
     Indication: ATRIAL FIBRILLATION
  5. GABAPENTIN [Concomitant]
     Indication: BACK PAIN
  6. ALBUTEROL [Concomitant]
     Indication: CHRONIC OBSTRUCTIVE PULMONARY DISEASE

REACTIONS (1)
  - RASH [None]
